FAERS Safety Report 23622768 (Version 1)
Quarter: 2024Q1

REPORT INFORMATION
  Report Type: Report from Study
  Country: US (occurrence: US)
  Receive Date: 20240312
  Receipt Date: 20240312
  Transmission Date: 20240410
  Serious: No
  Sender: FDA-Public Use
  Company Number: US-AGIOS-2402US03673

PATIENT
  Sex: Female

DRUGS (1)
  1. MITAPIVAT [Suspect]
     Active Substance: MITAPIVAT
     Indication: Haemolytic anaemia enzyme specific
     Dosage: 20 MILLIGRAM, BID
     Route: 048
     Dates: start: 20221215

REACTIONS (3)
  - Joint stiffness [Unknown]
  - Haemoglobin decreased [Unknown]
  - Blood oestrogen decreased [Unknown]
